FAERS Safety Report 17295523 (Version 1)
Quarter: 2020Q1

REPORT INFORMATION
  Report Type: Spontaneous
  Country: US (occurrence: US)
  Receive Date: 20200121
  Receipt Date: 20200121
  Transmission Date: 20200409
  Serious: Yes (Other)
  Sender: FDA-Public Use
  Company Number: US-009507513-2001USA004536

PATIENT
  Age: 79 Year
  Sex: Male

DRUGS (5)
  1. IPILIMUMAB (+) NIVOLUMAB [Concomitant]
     Indication: METASTASES TO LIVER
  2. MORPHINE [Concomitant]
     Active Substance: MORPHINE
     Indication: PAIN
  3. REMERON [Suspect]
     Active Substance: MIRTAZAPINE
     Indication: DECREASED APPETITE
     Route: 048
  4. IPILIMUMAB (+) NIVOLUMAB [Concomitant]
     Indication: MALIGNANT MELANOMA
  5. IPILIMUMAB (+) NIVOLUMAB [Concomitant]
     Indication: CHOROID MELANOMA

REACTIONS (2)
  - Acute psychosis [Recovered/Resolved]
  - Product use in unapproved indication [Unknown]
